FAERS Safety Report 18300561 (Version 1)
Quarter: 2020Q3

REPORT INFORMATION
  Report Type: Spontaneous
  Country: US (occurrence: US)
  Receive Date: 20200922
  Receipt Date: 20200922
  Transmission Date: 20201103
  Serious: Yes (Hospitalization)
  Sender: FDA-Public Use
  Company Number: None

PATIENT
  Age: 78 Year
  Sex: Male
  Weight: 77.57 kg

DRUGS (19)
  1. FUROSEMIDE. [Concomitant]
     Active Substance: FUROSEMIDE
  2. PEPTO BESIMOL [Concomitant]
  3. FERROUS SOY [Concomitant]
  4. TARTRATE [Concomitant]
  5. REFRESH TEARS [Concomitant]
     Active Substance: CARBOXYMETHYLCELLULOSE SODIUM
  6. DONEPEZIL. [Concomitant]
     Active Substance: DONEPEZIL
  7. XARELTO [Suspect]
     Active Substance: RIVAROXABAN
     Indication: HEART RATE DECREASED
     Route: 048
     Dates: start: 201811
  8. SIMVASTATIN. [Concomitant]
     Active Substance: SIMVASTATIN
  9. AMIODARONE METOPROLOL [Concomitant]
  10. ASPIRIN. [Concomitant]
     Active Substance: ASPIRIN
  11. AMLODIPINE BESYLATE. [Concomitant]
     Active Substance: AMLODIPINE BESYLATE
  12. GABAPENTIN. [Concomitant]
     Active Substance: GABAPENTIN
  13. COUGH DROPS [Concomitant]
  14. GUM [Concomitant]
     Active Substance: SODIUM FLUORIDE
  15. AMLODARONE HCL [Concomitant]
  16. METOPROLOL TARTRATE. [Concomitant]
     Active Substance: METOPROLOL TARTRATE
  17. XARELTO [Suspect]
     Active Substance: RIVAROXABAN
     Indication: HYPERTENSION
     Route: 048
     Dates: start: 201811
  18. CHOLECALCIF [Concomitant]
  19. FINASTERIDE. [Concomitant]
     Active Substance: FINASTERIDE

REACTIONS (4)
  - Movement disorder [None]
  - Seizure [None]
  - Heart rate decreased [None]
  - Skin exfoliation [None]

NARRATIVE: CASE EVENT DATE: 20200617
